FAERS Safety Report 11021293 (Version 1)
Quarter: 2015Q2

REPORT INFORMATION
  Report Type: Report from Study
  Country: US (occurrence: US)
  Receive Date: 20150413
  Receipt Date: 20150413
  Transmission Date: 20150821
  Serious: Yes (Other)
  Sender: FDA-Public Use
  Company Number: PHEH2014US017225

PATIENT
  Sex: Male

DRUGS (1)
  1. TASIGNA [Suspect]
     Active Substance: NILOTINIB
     Indication: CHRONIC MYELOID LEUKAEMIA
     Dosage: 300 MG, BID
     Route: 048

REACTIONS (12)
  - Blood pressure decreased [Unknown]
  - Insomnia [Unknown]
  - Blood aldosterone decreased [Unknown]
  - Arterial occlusive disease [Unknown]
  - Gastrointestinal disorder [Unknown]
  - Tooth abscess [Unknown]
  - Pain [Unknown]
  - Atrioventricular block [Unknown]
  - Adrenal disorder [Unknown]
  - Liver disorder [Unknown]
  - Arteriosclerosis [Unknown]
  - Frustration [Unknown]
